FAERS Safety Report 4382035-0 (Version None)
Quarter: 2004Q2

REPORT INFORMATION
  Report Type: 
  Country: None (occurrence: None)
  Receive Date: 20040603
  Receipt Date: 20030509
  Transmission Date: 20050107
  Serious: Yes (Life-Threatening, Hospitalization)
  Sender: FDA-Public Use
  Company Number: 200314090US

PATIENT

DRUGS (2)
  1. LOVENOX [Suspect]
     Indication: DEEP VEIN THROMBOSIS
     Dosage: 1 MG/KG
  2. LOVENOX [Suspect]
     Indication: PULMONARY EMBOLISM
     Dosage: 1 MG/KG

REACTIONS (1)
  - HAEMORRHAGE INTRACRANIAL [None]
